FAERS Safety Report 5857268-4 (Version None)
Quarter: 2008Q3

REPORT INFORMATION
  Report Type: 
  Country: None (occurrence: None)
  Receive Date: 20080822
  Receipt Date: 20080812
  Transmission Date: 20090109
  Serious: Yes (Other)
  Sender: FDA-Public Use
  Company Number: 2008-02974

PATIENT
  Age: 60 Year
  Sex: Male

DRUGS (1)
  1. VELCADE [Suspect]
     Indication: MULTIPLE MYELOMA
     Dates: start: 20080303

REACTIONS (3)
  - DIALYSIS [None]
  - LOSS OF CONSCIOUSNESS [None]
  - RENAL FAILURE [None]
